FAERS Safety Report 7498983-9 (Version None)
Quarter: 2011Q2

REPORT INFORMATION
  Report Type: 
  Country: None (occurrence: None)
  Receive Date: 20110524
  Receipt Date: 20090930
  Transmission Date: 20111010
  Serious: Yes (Death, Other)
  Sender: FDA-Public Use
  Company Number: US-BAYER-200934470NA

PATIENT
  Age: 53 Year
  Sex: Male
  Weight: 70 kg

DRUGS (28)
  1. TRASYLOL [Suspect]
     Indication: CORONARY ARTERY BYPASS
     Dosage: 1 ML, UNK
     Route: 042
     Dates: start: 20050614, end: 20050614
  2. ACETYLSALICYLIC ACID SRT [Concomitant]
     Dosage: 81 MG, UNK
     Route: 048
     Dates: start: 20040301
  3. BROMFED [Concomitant]
     Dosage: 1 DAILY
     Route: 048
     Dates: start: 20030318
  4. PRILOSEC [Concomitant]
     Dosage: 20 MG, UNK
     Route: 048
     Dates: start: 19970602
  5. HYDROCODONE [Concomitant]
     Dosage: UNK UNK, PRN
     Dates: start: 20040301
  6. ANCEF [Concomitant]
     Dosage: 2 G, UNK
     Route: 042
     Dates: start: 20050614, end: 20050614
  7. TRASYLOL [Suspect]
     Dosage: 200 ML, BOLUS
     Route: 042
     Dates: start: 20050614, end: 20050614
  8. CLONIDINE [Concomitant]
     Dosage: 0.1 MG, BID
     Route: 048
     Dates: start: 20031120
  9. MOTRIN [Concomitant]
     Dosage: 4-5 TABLETS
     Route: 048
     Dates: start: 20040301
  10. LASIX [Concomitant]
     Dosage: 60 MG, UNK
  11. LIDOCAINE [Concomitant]
     Dosage: 100 MG, UNK
     Route: 042
     Dates: start: 20050614, end: 20050614
  12. TENORETIC [Concomitant]
     Dosage: 50/25 MG
  13. RED BLOOD CELLS [Concomitant]
     Dosage: 4 U, UNK
     Route: 042
     Dates: start: 20050614
  14. TRASYLOL [Suspect]
     Dosage: 200 ML, PUMP PRIME
     Route: 042
     Dates: start: 20050614, end: 20050614
  15. TRASYLOL [Suspect]
     Dosage: 50ML/HOUR, INFUSION
     Route: 042
     Dates: start: 20050614, end: 20050614
  16. DIOVAN [Concomitant]
     Dosage: 160 MG, BID
     Route: 048
     Dates: start: 20031120
  17. PROPOFOL [Concomitant]
     Dosage: 60 MG, UNK
     Route: 048
     Dates: start: 20050614, end: 20050614
  18. DOBUTREX [Concomitant]
     Dosage: UNK
  19. MANNITOL [Concomitant]
     Dosage: 500CC
     Route: 042
     Dates: start: 20050614, end: 20050614
  20. MAGNESIUM SULFATE [Concomitant]
     Dosage: 2 G, UNK
     Route: 042
     Dates: start: 20050614, end: 20050614
  21. PRAVACHOL [Concomitant]
     Dosage: 1 DAILY
     Route: 048
     Dates: start: 20030421, end: 20050508
  22. VERSED [Concomitant]
     Dosage: 5 MG, UNK
     Route: 042
     Dates: start: 20050614, end: 20050614
  23. ALBUMIN (HUMAN) [Concomitant]
     Dosage: 25 G, UNK
     Route: 042
     Dates: start: 20050614, end: 20050614
  24. PROTAMINE SULFATE [Concomitant]
  25. PAXIL CR [Concomitant]
     Dosage: 1 DAILY
     Route: 048
     Dates: start: 20030603
  26. HEPARIN [Concomitant]
  27. HEPARIN [Concomitant]
     Dosage: 40000 U, UNK
     Route: 042
     Dates: start: 20050614, end: 20050614
  28. LEVOPHED [Concomitant]
     Dosage: 40 MG, UNK

REACTIONS (13)
  - RENAL FAILURE [None]
  - MULTI-ORGAN FAILURE [None]
  - UNEVALUABLE EVENT [None]
  - ANHEDONIA [None]
  - EMOTIONAL DISTRESS [None]
  - STRESS [None]
  - INJURY [None]
  - PAIN [None]
  - ANXIETY [None]
  - FEAR [None]
  - RENAL INJURY [None]
  - DEATH [None]
  - RENAL IMPAIRMENT [None]
